FAERS Safety Report 9372816 (Version 1)
Quarter: 2013Q2

REPORT INFORMATION
  Report Type: Spontaneous
  Country: BR (occurrence: BR)
  Receive Date: 20130627
  Receipt Date: 20130627
  Transmission Date: 20140414
  Serious: Yes (Death, Hospitalization)
  Sender: FDA-Public Use
  Company Number: BR-GENZYME-POMP-1003091

PATIENT
  Age: 1 Year
  Sex: Female

DRUGS (1)
  1. MYOZYME [Suspect]
     Indication: GLYCOGEN STORAGE DISEASE TYPE II
     Dosage: UNK
     Route: 042
     Dates: start: 20130301, end: 20130531

REACTIONS (4)
  - Cardiogenic shock [Fatal]
  - Nosocomial infection [Fatal]
  - Cardiac failure [Fatal]
  - Cardiomyopathy [Fatal]
